FAERS Safety Report 18439728 (Version 1)
Quarter: 2020Q4

REPORT INFORMATION
  Report Type: Spontaneous
  Country: US (occurrence: US)
  Receive Date: 20201029
  Receipt Date: 20201029
  Transmission Date: 20210114
  Serious: No
  Sender: FDA-Public Use
  Company Number: US-VISTAPHARM, INC.-VER202007-001305

PATIENT
  Sex: Male

DRUGS (3)
  1. CLOBAZAM. [Suspect]
     Active Substance: CLOBAZAM
     Indication: SEVERE MYOCLONIC EPILEPSY OF INFANCY
     Dosage: 3.5 ML 3 TIMES A DAY
     Route: 048
  2. FENFLURAMINE [Concomitant]
     Active Substance: FENFLURAMINE
     Indication: SEVERE MYOCLONIC EPILEPSY OF INFANCY
     Dosage: 2.7 ML TWICE A DAY
     Route: 048
  3. EPIDIOLEX [Concomitant]
     Active Substance: CANNABIDIOL
     Indication: SEVERE MYOCLONIC EPILEPSY OF INFANCY
     Dosage: 2.1 ML TWICE A DAY
     Route: 048

REACTIONS (7)
  - Product packaging issue [Not Recovered/Not Resolved]
  - Product container seal issue [Not Recovered/Not Resolved]
  - Product packaging difficult to open [Not Recovered/Not Resolved]
  - Product use in unapproved indication [Unknown]
  - Product design issue [Not Recovered/Not Resolved]
  - Product primary packaging issue [Not Recovered/Not Resolved]
  - Product outer packaging issue [Not Recovered/Not Resolved]
